FAERS Safety Report 21630407 (Version 3)
Quarter: 2024Q4

REPORT INFORMATION
  Report Type: Report from Study
  Country: US (occurrence: US)
  Receive Date: 20221122
  Receipt Date: 20241219
  Transmission Date: 20250115
  Serious: Yes (Death, Hospitalization, Other)
  Sender: BRISTOL-MYERS SQUIBB COMPANY
  Company Number: US-BRISTOL-MYERS SQUIBB COMPANY-2022-094534

PATIENT
  Age: 78 Year
  Sex: Female
  Weight: 64.5 kg

DRUGS (5)
  1. POMALIDOMIDE [Suspect]
     Active Substance: POMALIDOMIDE
     Indication: Plasma cell myeloma
     Dosage: FREQUENCY: Q DAY 21 DAYS, 7 DAY OFF
     Route: 048
     Dates: start: 20220201, end: 20220607
  2. POMALIDOMIDE [Suspect]
     Active Substance: POMALIDOMIDE
     Dosage: FREQUENCY: Q DAY 21 DAYS, 7 DAY OFF
     Route: 048
     Dates: start: 20200728, end: 20200808
  3. POMALIDOMIDE [Suspect]
     Active Substance: POMALIDOMIDE
     Dosage: FREQUENCY: Q DAY 21 DAYS, 7 DAY OFF, REASON FOR STOPPING: ABSECES TOOTH
     Route: 048
     Dates: start: 20200820, end: 20210309
  4. POMALIDOMIDE [Suspect]
     Active Substance: POMALIDOMIDE
     Dosage: FREQUENCY: Q DAY 21 DAYS, 7 DAY OFF, REASON FOR STOPPING: HOSPITALIZATION
     Route: 048
     Dates: start: 20210406, end: 20210821
  5. DARZALEX FASPRO [Suspect]
     Active Substance: DARATUMUMAB\HYALURONIDASE-FIHJ
     Indication: Plasma cell myeloma
     Dosage: WEEKLY, REASON FOR STOPPING: RELAPSE/PROGRESSIVE DISEASE
     Route: 058
     Dates: start: 20220118, end: 20220523

REACTIONS (5)
  - Compression fracture [Unknown]
  - Hypercalcaemia [Unknown]
  - Acute kidney injury [Unknown]
  - Failure to thrive [Fatal]
  - Plasma cell myeloma [Unknown]

NARRATIVE: CASE EVENT DATE: 20220218
